FAERS Safety Report 4385727-2 (Version None)
Quarter: 2004Q2

REPORT INFORMATION
  Report Type: 
  Country: None (occurrence: None)
  Receive Date: 20040623
  Receipt Date: 20040608
  Transmission Date: 20050107
  Serious: Yes (Hospitalization)
  Sender: FDA-Public Use
  Company Number: A02200401850

PATIENT
  Age: 52 Year
  Sex: Female

DRUGS (10)
  1. STILNOX - (ZOLPIDEM) - TABLET - 10 MG [Suspect]
     Indication: SLEEP DISORDER
     Dosage: 10 MG OD
     Route: 048
  2. ZOLOFT [Suspect]
     Indication: DEPRESSION
     Dosage: 50 MG OD; TIME TO ONSET : 3 WEEKS 2 DAYS
     Route: 048
     Dates: start: 20040403
  3. DI-ANTALVIC (PARACETAMOL/DEXTROPROPOXYPHENE) [Concomitant]
  4. ACETAMINOPHEN [Concomitant]
  5. LAPROXYL (AMITRIPTYLINE HYDOCHLORIDE) [Concomitant]
  6. RHINOFEBRAL (ASCORBIC ACID/CHLORPHENAMIN/PARACETAMOL) [Concomitant]
  7. INIPOMP (PANTOPRAZOLE) [Concomitant]
  8. ZOCOR [Concomitant]
  9. BEDELIX (MONTMORILLONITE) [Concomitant]
  10. DICETEL (PINAVERIUM BROMIDE) [Concomitant]

REACTIONS (3)
  - ASTHENIA [None]
  - MALAISE [None]
  - SOMNOLENCE [None]
